FAERS Safety Report 25896742 (Version 1)
Quarter: 2025Q4

REPORT INFORMATION
  Report Type: Spontaneous
  Country: US (occurrence: None)
  Receive Date: 20251008
  Receipt Date: 20251008
  Transmission Date: 20260118
  Serious: Yes (Death)
  Sender: FDA-CTU
  Company Number: None

PATIENT
  Age: 76 Year
  Sex: Female

DRUGS (29)
  1. DUPIXENT [Suspect]
     Active Substance: DUPILUMAB
     Indication: Asthma
     Dosage: 300 MG EVERY 2 WKS SUBCUTANUS?
     Route: 058
     Dates: start: 20250717, end: 20250924
  2. CHLORZOXAZONE 500MC TABLETS [Concomitant]
  3. COLACE 100MG CAPSULES [Concomitant]
  4. CROMOL YN SOD 100/5ML ORALCONC 5ML [Concomitant]
  5. CROMOL YN SOD 100/5ML ORALCONC 5ML [Concomitant]
  6. CULTURELLE ADVANCED IMMUNE DEFENSE [Concomitant]
  7. DIFLUPREDNATE 0.05% OPH EMUL 5ML [Concomitant]
  8. FEBUXOSTAT [Concomitant]
     Active Substance: FEBUXOSTAT
  9. FOLINIC-PLUS 4-50-2MG TABLETS [Concomitant]
  10. FLONASE 50MCG NAS SPRAY RX (120SPR) [Concomitant]
  11. FUROSEMIDE [Concomitant]
     Active Substance: FUROSEMIDE
  12. GABAPENTIN [Concomitant]
     Active Substance: GABAPENTIN
  13. LANTUS SOLOSTAR PEN INJ 3ML [Concomitant]
  14. LEVOFLOXACIN [Concomitant]
     Active Substance: LEVOFLOXACIN
  15. LEVOTHYROXINE 0.05MG (50MCG) TAB [Concomitant]
  16. LOSARTAN [Concomitant]
     Active Substance: LOSARTAN
  17. METHOCARBAMOL [Concomitant]
     Active Substance: METHOCARBAMOL
  18. MUCINEX 1200MG MAX STRENGTH 14^S [Concomitant]
  19. NOVOLOG FLEXPEN INJ 3ML (ORANGE) [Concomitant]
  20. ACETYLCYSTEINE 20% INH SOL 3 X 30ML [Concomitant]
  21. ALBUTEROL 0.021 %(0.63MG/3ML) 25X3ML [Concomitant]
  22. AMITIZA [Concomitant]
     Active Substance: LUBIPROSTONE
  23. AMLODIPINE BESYLATE [Concomitant]
     Active Substance: AMLODIPINE BESYLATE
  24. ASPIRIN 81MG EC LOW DOSE TABLETS [Concomitant]
  25. BENZONATATE [Concomitant]
     Active Substance: BENZONATATE
  26. BREO ELLIPTA 100-25MCG ORAL INH(30) [Concomitant]
  27. CALCIUM + VIT D3 LIOUI D [Concomitant]
  28. CARVEDI LOL 12.5MG TABLETS [Concomitant]
  29. CETIRIZINE [Concomitant]
     Active Substance: CETIRIZINE HYDROCHLORIDE

REACTIONS (1)
  - Death [None]

NARRATIVE: CASE EVENT DATE: 20250924
